FAERS Safety Report 21910648 (Version 3)
Quarter: 2023Q1

REPORT INFORMATION
  Report Type: Spontaneous
  Country: US (occurrence: US)
  Receive Date: 20230125
  Receipt Date: 20230221
  Transmission Date: 20230418
  Serious: No
  Sender: FDA-Public Use
  Company Number: US-SA-SAC20230124000170

PATIENT
  Age: 46 Year
  Sex: Female
  Weight: 74.3 kg

DRUGS (1)
  1. DUPIXENT [Suspect]
     Active Substance: DUPILUMAB
     Indication: Dermatitis atopic
     Dosage: 300 MG, QOW
     Route: 058
     Dates: end: 20230213

REACTIONS (10)
  - Initial insomnia [Unknown]
  - Injection site urticaria [Unknown]
  - Injection site erythema [Unknown]
  - Dermatitis atopic [Unknown]
  - Conjunctivitis [Recovered/Resolved]
  - Pruritus [Unknown]
  - Rash [Unknown]
  - Dry skin [Unknown]
  - Sleep disorder [Unknown]
  - Drug ineffective [Unknown]

NARRATIVE: CASE EVENT DATE: 20230101
